FAERS Safety Report 14610795 (Version 1)
Quarter: 2018Q1

REPORT INFORMATION
  Report Type: Spontaneous
  Country: FR (occurrence: FR)
  Receive Date: 20180308
  Receipt Date: 20180308
  Transmission Date: 20180509
  Serious: Yes (Other)
  Sender: FDA-Public Use
  Company Number: FR-CONCORDIA PHARMACEUTICALS INC.-GSH201803-000907

PATIENT
  Age: 29 Year
  Sex: Female

DRUGS (2)
  1. ALFUZOSIN [Suspect]
     Active Substance: ALFUZOSIN
     Indication: URINARY RETENTION
     Route: 048
     Dates: start: 201712
  2. CONTRACEPTIVE PILLS NOS [Concomitant]

REACTIONS (3)
  - Pyelonephritis [Unknown]
  - Exposure during pregnancy [Unknown]
  - Off label use [Unknown]
